FAERS Safety Report 8664827 (Version 6)
Quarter: 2014Q3

REPORT INFORMATION
  Report Type: Spontaneous
  Country: US (occurrence: US)
  Receive Date: 20120713
  Receipt Date: 20140903
  Transmission Date: 20150326
  Serious: Yes (Hospitalization, Other)
  Sender: FDA-Public Use
  Company Number: US-009507513-2012SP022824

PATIENT
  Sex: Female
  Weight: 81.63 kg

DRUGS (2)
  1. ONE-A-DAY ESSENTIAL VITAMINS [Concomitant]
     Indication: ROUTINE HEALTH MAINTENANCE
  2. NUVARING [Suspect]
     Active Substance: ETHINYL ESTRADIOL\ETONOGESTREL
     Indication: CONTRACEPTION
     Dosage: UNK
     Route: 067
     Dates: start: 20090702, end: 20100413

REACTIONS (9)
  - Chest pain [Recovering/Resolving]
  - Syncope [Unknown]
  - Pulmonary embolism [Unknown]
  - Dyspnoea [Unknown]
  - Cervical dysplasia [Unknown]
  - Trichomoniasis [Unknown]
  - Nausea [Unknown]
  - Atelectasis [Unknown]
  - Fatigue [Unknown]

NARRATIVE: CASE EVENT DATE: 201002
